FAERS Safety Report 7085502-4 (Version None)
Quarter: 2010Q4

REPORT INFORMATION
  Report Type: 
  Country: None (occurrence: None)
  Receive Date: 20101105
  Receipt Date: 20101102
  Transmission Date: 20110411
  Serious: Yes (Other)
  Sender: FDA-Public Use
  Company Number: US-WYE-H18526010

PATIENT
  Sex: Female
  Weight: 59.02 kg

DRUGS (3)
  1. PRISTIQ [Suspect]
     Indication: ANXIETY
     Route: 048
     Dates: start: 20090501, end: 20100801
  2. PRISTIQ [Suspect]
     Dates: start: 20100801, end: 20101001
  3. PROZAC [Concomitant]
     Dosage: 1 DOSE EVERY 1 TOT
     Dates: start: 20100901, end: 20100901

REACTIONS (7)
  - BLOOD PRESSURE INCREASED [None]
  - CRYING [None]
  - DRUG WITHDRAWAL SYNDROME [None]
  - EMOTIONAL DISORDER [None]
  - MALAISE [None]
  - MEMORY IMPAIRMENT [None]
  - MENTAL IMPAIRMENT [None]
